FAERS Safety Report 23464600 (Version 1)
Quarter: 2024Q1

REPORT INFORMATION
  Report Type: Spontaneous
  Country: GB (occurrence: GB)
  Receive Date: 20240201
  Receipt Date: 20240201
  Transmission Date: 20240410
  Serious: Yes (Other)
  Sender: FDA-Public Use
  Company Number: GB-TEVA-VS-3149588

PATIENT
  Age: 15 Year
  Sex: Male

DRUGS (1)
  1. PRIMIDONE [Suspect]
     Active Substance: PRIMIDONE
     Indication: Tremor
     Route: 065
     Dates: start: 20231216, end: 20231217

REACTIONS (5)
  - Syncope [Recovered/Resolved]
  - Dizziness [Recovering/Resolving]
  - Lethargy [Recovered/Resolved]
  - Nausea [Recovered/Resolved]
  - Medication error [Unknown]

NARRATIVE: CASE EVENT DATE: 20231216
